FAERS Safety Report 5749099-0 (Version None)
Quarter: 2008Q2

REPORT INFORMATION
  Report Type: 
  Country: None (occurrence: None)
  Receive Date: 20080522
  Receipt Date: 20080425
  Transmission Date: 20081010
  Serious: Yes (Hospitalization)
  Sender: FDA-Public Use
  Company Number: 2008EU000887

PATIENT
  Age: 43 Year
  Sex: Female

DRUGS (3)
  1. TACROLIMUS [Suspect]
     Indication: UVEITIS
     Dates: end: 20060101
  2. MYCOPHENOLATE MOFETIL [Concomitant]
  3. PREDNISOLONE [Concomitant]

REACTIONS (8)
  - CARDIOGENIC SHOCK [None]
  - HYPERTENSION [None]
  - LEFT VENTRICULAR FAILURE [None]
  - LOWER RESPIRATORY TRACT INFECTION [None]
  - MITRAL VALVE INCOMPETENCE [None]
  - PNEUMONIA [None]
  - URINARY TRACT INFECTION [None]
  - WEIGHT DECREASED [None]
